FAERS Safety Report 8022892-X (Version None)
Quarter: 2011Q4

REPORT INFORMATION
  Report Type: 
  Country: None (occurrence: None)
  Receive Date: 20111230
  Receipt Date: 20111213
  Transmission Date: 20120403
  Serious: Yes (Other)
  Sender: FDA-Public Use
  Company Number: 2011AP002970

PATIENT
  Age: 35 Year
  Sex: Male
  Weight: 91 kg

DRUGS (1)
  1. OXYBUTYNIN CHLORIDE [Suspect]
     Indication: BLADDER SPASM
     Dosage: 10 MG;

REACTIONS (2)
  - DELIRIUM [None]
  - AGITATION [None]
